FAERS Safety Report 11720369 (Version 2)
Quarter: 2015Q4

REPORT INFORMATION
  Report Type: Report from Study
  Country: US (occurrence: US)
  Receive Date: 20151110
  Receipt Date: 20151112
  Transmission Date: 20160304
  Serious: Yes (Congenital Anomaly, Other)
  Sender: FDA-Public Use
  Company Number: US-009507513-1201USA02584B1

PATIENT
  Sex: Female
  Weight: 3.26 kg

DRUGS (4)
  1. ISENTRESS [Suspect]
     Active Substance: RALTEGRAVIR POTASSIUM
     Dosage: UNK
     Route: 064
     Dates: start: 20111202, end: 20111212
  2. COMBIVIR [Suspect]
     Active Substance: LAMIVUDINE\ZIDOVUDINE
     Dosage: UNK
     Route: 064
     Dates: start: 20111202, end: 20111212
  3. RETROVIR [Suspect]
     Active Substance: ZIDOVUDINE
     Dosage: UNK
     Route: 064
     Dates: start: 20111212, end: 20111212
  4. EFAVIRENZ [Suspect]
     Active Substance: EFAVIRENZ
     Dosage: TOTAL DAILY DOSE: 1200 MG, QD
     Route: 064
     Dates: start: 20111202, end: 20111212

REACTIONS (3)
  - Cleft palate [Unknown]
  - Cleft lip [Unknown]
  - Foetal exposure during pregnancy [Recovered/Resolved]
